FAERS Safety Report 17466783 (Version 1)
Quarter: 2020Q1

REPORT INFORMATION
  Report Type: Report from Study
  Country: US (occurrence: US)
  Receive Date: 20200227
  Receipt Date: 20200227
  Transmission Date: 20200409
  Serious: Yes (Other)
  Sender: FDA-Public Use
  Company Number: US-GLAXOSMITHKLINE-2019-TSO00388-US

PATIENT
  Sex: Female

DRUGS (3)
  1. NIRAPARIB [Suspect]
     Active Substance: NIRAPARIB
     Dosage: 100 MG DAILY WITH OR WITHOUT FOOD AT THE SAME TIME EACH
     Route: 048
  2. NIRAPARIB [Suspect]
     Active Substance: NIRAPARIB
     Indication: PRODUCT USED FOR UNKNOWN INDICATION
     Dosage: 300 MG, EVERY DAY
     Dates: start: 201708
  3. NIRAPARIB [Suspect]
     Active Substance: NIRAPARIB
     Dosage: 100 MG, EVERY DAY
     Dates: start: 20180109, end: 20191218

REACTIONS (4)
  - Product dose omission [Unknown]
  - Increased appetite [Unknown]
  - Recurrent cancer [Unknown]
  - Platelet count decreased [Unknown]
